FAERS Safety Report 17788424 (Version 1)
Quarter: 2020Q2

REPORT INFORMATION
  Report Type: Spontaneous
  Country: US (occurrence: US)
  Receive Date: 20200514
  Receipt Date: 20200514
  Transmission Date: 20200714
  Serious: No
  Sender: FDA-Public Use
  Company Number: US-CIPHER-2020-US-000001

PATIENT
  Age: 76 Year
  Sex: Female
  Weight: 63.05 kg

DRUGS (6)
  1. ORENITRAM [Suspect]
     Active Substance: TREPROSTINIL
     Indication: PULMONARY ARTERIAL HYPERTENSION
     Route: 048
  2. AMBRISENTAN [Concomitant]
     Active Substance: AMBRISENTAN
  3. TREPROSTINIL. [Suspect]
     Active Substance: TREPROSTINIL
     Indication: PULMONARY ARTERIAL HYPERTENSION
     Route: 048
     Dates: start: 20190607
  4. TADALAFIL. [Concomitant]
     Active Substance: TADALAFIL
     Indication: PRODUCT USED FOR UNKNOWN INDICATION
  5. TRAMADOL HYDROCHLORIDE. [Suspect]
     Active Substance: TRAMADOL HYDROCHLORIDE
     Indication: PRODUCT USED FOR UNKNOWN INDICATION
  6. ORENITRAM [Suspect]
     Active Substance: TREPROSTINIL
     Indication: PULMONARY ARTERIAL HYPERTENSION
     Route: 048

REACTIONS (14)
  - Tinnitus [Unknown]
  - Arthritis [Unknown]
  - Asthenia [Unknown]
  - Dental discomfort [Unknown]
  - Anxiety [Unknown]
  - Malaise [Unknown]
  - Feeling abnormal [Unknown]
  - Tension [Unknown]
  - Headache [Unknown]
  - Blood pressure increased [Unknown]
  - Pain in jaw [Unknown]
  - Nausea [Unknown]
  - Ear pain [Unknown]
  - Sinusitis [Unknown]
